FAERS Safety Report 8776656 (Version 1)
Quarter: 2012Q4

REPORT INFORMATION
  Report Type: 
  Country: FR (occurrence: FR)
  Receive Date: 20120910
  Receipt Date: 20120910
  Transmission Date: 20130627
  Serious: Yes (Death, Life-Threatening, Hospitalization, Other)
  Sender: FDA-Public Use
  Company Number: FR-ASTRAZENECA-2012SE69912

PATIENT
  Age: 17668 Day
  Sex: Female

DRUGS (1)
  1. ZOMIG [Suspect]
     Indication: MIGRAINE
     Route: 048
     Dates: start: 201208, end: 201208

REACTIONS (6)
  - Cerebellar infarction [Fatal]
  - Myocardial infarction [Fatal]
  - Vertebral artery dissection [Fatal]
  - Ventricular fibrillation [Fatal]
  - Coronary artery dissection [Fatal]
  - Pneumonia staphylococcal [Unknown]
